FAERS Safety Report 25274866 (Version 1)
Quarter: 2025Q2

REPORT INFORMATION
  Report Type: Spontaneous
  Country: US (occurrence: None)
  Receive Date: 20250506
  Receipt Date: 20250506
  Transmission Date: 20250717
  Serious: Yes (Death)
  Sender: INCYTE
  Company Number: US-002147023-NVSC2025US067368

PATIENT
  Age: 25 Year

DRUGS (3)
  1. JAKAFI [Suspect]
     Active Substance: RUXOLITINIB
     Indication: Infection
     Dosage: 10 MG, BID (INCREASED TO 20MG BID, DECREASED TO 2.5MG DAILY)
     Route: 065
  2. JAKAFI [Suspect]
     Active Substance: RUXOLITINIB
     Indication: Disseminated coccidioidomycosis
  3. JAKAFI [Suspect]
     Active Substance: RUXOLITINIB
     Indication: Immune system disorder

REACTIONS (6)
  - Therapy partial responder [Unknown]
  - Coccidioidomycosis [Fatal]
  - Respiratory failure [Fatal]
  - Off label use [Unknown]
  - Disease progression [Fatal]
  - Eye disorder [Unknown]
